FAERS Safety Report 24768445 (Version 1)
Quarter: 2024Q4

REPORT INFORMATION
  Report Type: Spontaneous
  Country: US (occurrence: US)
  Receive Date: 20241223
  Receipt Date: 20241223
  Transmission Date: 20250114
  Serious: Yes (Hospitalization)
  Sender: STRIDES
  Company Number: US-STRIDES ARCOLAB LIMITED-2024SP016874

PATIENT
  Age: 70 Year
  Sex: Male

DRUGS (1)
  1. ATORVASTATIN [Suspect]
     Active Substance: ATORVASTATIN
     Indication: Cerebrovascular accident
     Dosage: 80 MILLIGRAM, QD
     Route: 065

REACTIONS (9)
  - Hyperkalaemia [Recovered/Resolved]
  - Hypocalcaemia [Recovered/Resolved]
  - Autoimmune thyroiditis [Recovered/Resolved]
  - Hypertransaminasaemia [Recovered/Resolved]
  - Anuria [Recovered/Resolved]
  - Rhabdomyolysis [Recovered/Resolved]
  - Acute kidney injury [Recovered/Resolved]
  - Hypothyroidism [Recovered/Resolved]
  - Off label use [Unknown]
